FAERS Safety Report 6570722-5 (Version None)
Quarter: 2010Q1

REPORT INFORMATION
  Report Type: 
  Country: None (occurrence: None)
  Receive Date: 20100204
  Receipt Date: 20100126
  Transmission Date: 20100710
  Serious: Yes (Hospitalization)
  Sender: FDA-Public Use
  Company Number: B0624796A

PATIENT
  Sex: Female
  Weight: 56 kg

DRUGS (11)
  1. ARIXTRA [Suspect]
     Indication: THROMBOSIS PROPHYLAXIS
     Dosage: 1.5MG PER DAY
     Route: 058
     Dates: start: 20091210, end: 20091210
  2. FLUMARIN [Concomitant]
     Indication: DRUG USE FOR UNKNOWN INDICATION
     Dosage: 2G PER DAY
     Route: 042
     Dates: start: 20091208
  3. BISOLVON [Concomitant]
     Indication: DRUG USE FOR UNKNOWN INDICATION
     Dosage: 16MG PER DAY
     Route: 042
     Dates: start: 20091208
  4. UNSPECIFIED DRUG [Concomitant]
     Indication: DRUG USE FOR UNKNOWN INDICATION
     Route: 048
  5. OMEPRAL [Concomitant]
     Dosage: 20MG PER DAY
     Route: 042
     Dates: start: 20091208
  6. PANTOL [Concomitant]
     Dosage: 400MG PER DAY
     Dates: start: 20091208
  7. HICALIQ [Concomitant]
     Dosage: 1400ML PER DAY
     Route: 042
     Dates: start: 20091207
  8. FACTOR XIII [Concomitant]
     Dates: start: 20091208
  9. FIBRINOGEN [Concomitant]
     Dates: start: 20091208
  10. APROTININ [Concomitant]
     Dates: start: 20091208
  11. THROMBIN LOCAL SOLUTION [Concomitant]
     Dates: start: 20091208

REACTIONS (4)
  - DEPRESSED LEVEL OF CONSCIOUSNESS [None]
  - INTRA-ABDOMINAL HAEMORRHAGE [None]
  - RESPIRATORY FAILURE [None]
  - SHOCK [None]
